FAERS Safety Report 10610833 (Version 3)
Quarter: 2015Q2

REPORT INFORMATION
  Report Type: Spontaneous
  Country: US (occurrence: US)
  Receive Date: 20141126
  Receipt Date: 20150429
  Transmission Date: 20150821
  Serious: Yes (Hospitalization)
  Sender: FDA-Public Use
  Company Number: US-MALLINCKRODT-T201402321

PATIENT
  Age: 54 Year
  Sex: Female

DRUGS (1)
  1. GABLOFEN [Suspect]
     Active Substance: BACLOFEN
     Indication: MUSCLE SPASTICITY
     Dosage: 500 MCG/DAY
     Route: 037

REACTIONS (3)
  - Device issue [Unknown]
  - Drug withdrawal syndrome [Unknown]
  - Renal failure [None]

NARRATIVE: CASE EVENT DATE: 20140120
